FAERS Safety Report 8593108-0 (Version None)
Quarter: 2012Q3

REPORT INFORMATION
  Report Type: 
  Country: None (occurrence: None)
  Receive Date: 20120814
  Receipt Date: 19910506
  Transmission Date: 20120928
  Serious: Yes (Hospitalization)
  Sender: FDA-Public Use
  Company Number: US-ROCHE-1100423

PATIENT
  Age: 50 Year
  Sex: Male

DRUGS (5)
  1. NITROGLYCERIN [Concomitant]
     Route: 065
  2. LIDOCAINE [Concomitant]
     Route: 065
  3. HEPARIN [Concomitant]
     Route: 065
  4. ACTIVASE [Suspect]
     Indication: ACUTE MYOCARDIAL INFARCTION
     Route: 065
  5. DOPAMINE HCL [Concomitant]
     Route: 065

REACTIONS (3)
  - HYPOTENSION [None]
  - BLOOD CREATINE PHOSPHOKINASE MB INCREASED [None]
  - HAEMATURIA [None]
